FAERS Safety Report 6634174-9 (Version None)
Quarter: 2010Q1

REPORT INFORMATION
  Report Type: 
  Country: None (occurrence: None)
  Receive Date: 20100315
  Receipt Date: 20100310
  Transmission Date: 20100710
  Serious: Yes (Death, Life-Threatening)
  Sender: FDA-Public Use
  Company Number: CH-ASTRAZENECA-2010SE10397

PATIENT
  Age: 49 Year
  Sex: Female

DRUGS (5)
  1. SEROQUEL [Suspect]
     Route: 048
     Dates: start: 20091212, end: 20091212
  2. SEROQUEL [Suspect]
     Route: 048
     Dates: start: 20091214, end: 20091215
  3. SEROQUEL [Suspect]
     Dosage: 25 MG TABLET+200 MG TABLER SR
     Route: 048
     Dates: start: 20091216, end: 20091216
  4. REMERON [Suspect]
     Route: 048
     Dates: start: 20091212, end: 20091216
  5. TEMESTA [Concomitant]
     Route: 048
     Dates: start: 20091212, end: 20091213

REACTIONS (1)
  - COMPLETED SUICIDE [None]
